FAERS Safety Report 6085221-7 (Version None)
Quarter: 2009Q1

REPORT INFORMATION
  Report Type: 
  Country: None (occurrence: None)
  Receive Date: 20090220
  Receipt Date: 20090213
  Transmission Date: 20090719
  Serious: Yes (Hospitalization)
  Sender: FDA-Public Use
  Company Number: US-BIOGENIDEC-2009BI004906

PATIENT
  Age: 50 Year
  Sex: Female
  Weight: 117 kg

DRUGS (3)
  1. AVONEX [Suspect]
     Indication: MULTIPLE SCLEROSIS
     Route: 030
     Dates: start: 20071101, end: 20071201
  2. AVONEX [Suspect]
     Route: 030
     Dates: start: 20071201, end: 20080301
  3. AVONEX [Suspect]
     Route: 030
     Dates: start: 20080301

REACTIONS (1)
  - BREAST CANCER [None]
